FAERS Safety Report 8517147-0 (Version None)
Quarter: 2012Q3

REPORT INFORMATION
  Report Type: 
  Country: None (occurrence: None)
  Receive Date: 20120706
  Receipt Date: 20120627
  Transmission Date: 20120928
  Serious: Yes (Hospitalization)
  Sender: FDA-Public Use
  Company Number: AUR-APL-2012-02835

PATIENT
  Age: 59 Year
  Sex: Female

DRUGS (6)
  1. ENALAPRIL MALEATE [Suspect]
     Indication: ESSENTIAL HYPERTENSION
  2. BETOLVED (CYANOCALAMIN) [Concomitant]
  3. IBUPROFEN [Suspect]
     Indication: PAIN IN EXTREMITY
  4. FOLACIN (FOLIC ACID) [Concomitant]
  5. METFFORMIN HYDROCHLORIDE [Suspect]
     Indication: DIABETES MELLITUS
     Dates: end: 20120615
  6. OMEPRAZOLE [Concomitant]

REACTIONS (2)
  - RENAL FAILURE ACUTE [None]
  - DIALYSIS [None]
